FAERS Safety Report 25597680 (Version 1)
Quarter: 2025Q3

REPORT INFORMATION
  Report Type: Spontaneous
  Country: JP (occurrence: JP)
  Receive Date: 20250723
  Receipt Date: 20250723
  Transmission Date: 20251020
  Serious: Yes (Hospitalization)
  Sender: ALEXION PHARMACEUTICALS
  Company Number: JP-ASTRAZENECA-202507JPN018713JP

PATIENT
  Age: 79 Year
  Sex: Female
  Weight: 48 kg

DRUGS (7)
  1. IMFINZI [Suspect]
     Active Substance: DURVALUMAB
     Indication: Hepatocellular carcinoma
     Dosage: 1500 MILLIGRAM, QD
     Dates: start: 20250617, end: 20250617
  2. IMJUDO [Suspect]
     Active Substance: TREMELIMUMAB\TREMELIMUMAB-ACTL
     Indication: Hepatocellular carcinoma
     Dosage: 300 MILLIGRAM, QD
     Dates: start: 20250617, end: 20250617
  3. MORPHINE HYDROCHLORIDE [Concomitant]
     Active Substance: MORPHINE HYDROCHLORIDE
     Route: 065
  4. URSODIOL [Concomitant]
     Active Substance: URSODIOL
  5. ISOSORBIDE MONONITRATE [Concomitant]
     Active Substance: ISOSORBIDE MONONITRATE
  6. MIYA-BM [Concomitant]
     Active Substance: CLOSTRIDIUM BUTYRICUM SPORES STRAIN M-55
  7. VIBEGRON [Concomitant]
     Active Substance: VIBEGRON

REACTIONS (5)
  - Immune-mediated hepatic disorder [Recovering/Resolving]
  - Immune-mediated myocarditis [Recovering/Resolving]
  - Immune-mediated myositis [Recovering/Resolving]
  - Eyelid ptosis [Unknown]
  - Total lung capacity decreased [Unknown]

NARRATIVE: CASE EVENT DATE: 20250702
